FAERS Safety Report 19146507 (Version 1)
Quarter: 2021Q2

REPORT INFORMATION
  Report Type: Spontaneous
  Country: CA (occurrence: CA)
  Receive Date: 20210416
  Receipt Date: 20210416
  Transmission Date: 20210717
  Serious: Yes (Life-Threatening, Hospitalization)
  Sender: FDA-Public Use
  Company Number: CA-PFIZER INC-2021382442

PATIENT
  Age: 4 Year
  Sex: Female
  Weight: 16 kg

DRUGS (10)
  1. VINCRISTINE SULFATE. [Suspect]
     Active Substance: VINCRISTINE SULFATE
     Indication: EWING^S SARCOMA
     Dosage: 1.4 MG, 1 EVERY 10 MINUTES
     Route: 042
  2. DOXORUBICIN HYDROCHLORIDE INJECTION [Suspect]
     Active Substance: DOXORUBICIN HYDROCHLORIDE
     Indication: EWING^S SARCOMA
     Dosage: 26 MG, 1 EVERY 15 MINUTES
     Route: 042
  3. DIMENHYDRINATE. [Concomitant]
     Active Substance: DIMENHYDRINATE
  4. MESNA. [Concomitant]
     Active Substance: MESNA
  5. POLYETHYLENE GLYCOL [MACROGOL] [Concomitant]
     Active Substance: POLYETHYLENE GLYCOLS
  6. NOREPINEPHRINE. [Concomitant]
     Active Substance: NOREPINEPHRINE
  7. ONDANSETRON [Concomitant]
     Active Substance: ONDANSETRON
  8. TRIMETHOPRIM SULFAMETHOXAZOLE [Concomitant]
     Active Substance: SULFAMETHOXAZOLE\TRIMETHOPRIM
  9. DEXAMETHASONE. [Concomitant]
     Active Substance: DEXAMETHASONE
  10. CYCLOPHOSPHAMIDE. [Suspect]
     Active Substance: CYCLOPHOSPHAMIDE
     Indication: EWING^S SARCOMA
     Dosage: 830 MG, 1 EVERY 1 HOURS
     Route: 042

REACTIONS (1)
  - Febrile neutropenia [Recovered/Resolved]
